FAERS Safety Report 15933131 (Version 1)
Quarter: 2019Q1

REPORT INFORMATION
  Report Type: Spontaneous
  Country: ES (occurrence: ES)
  Receive Date: 20190207
  Receipt Date: 20190207
  Transmission Date: 20190417
  Serious: Yes (Hospitalization)
  Sender: FDA-Public Use
  Company Number: ES-PFIZER INC-2019048024

PATIENT
  Age: 88 Year
  Sex: Female

DRUGS (4)
  1. SPIRONOLACTONE. [Suspect]
     Active Substance: SPIRONOLACTONE
     Indication: CARDIOVASCULAR EVENT PROPHYLAXIS
     Dosage: 25 MG, ALTERNATE DAY
     Route: 048
     Dates: start: 20151018
  2. TORASEMIDE [Interacting]
     Active Substance: TORSEMIDE
     Indication: HYPERTENSION
     Dosage: 7.5 MG, 1X/DAY
     Route: 048
     Dates: start: 20151018
  3. CANDESARTAN. [Interacting]
     Active Substance: CANDESARTAN
     Indication: HYPERTENSION
     Dosage: 8 MG, 1X/DAY
     Route: 048
     Dates: start: 20151018
  4. CITALOPRAM [Interacting]
     Active Substance: CITALOPRAM HYDROBROMIDE
     Indication: MIXED ANXIETY AND DEPRESSIVE DISORDER
     Dosage: 10 MG, 1X/DAY
     Route: 048
     Dates: start: 201810, end: 20181107

REACTIONS (2)
  - Inappropriate antidiuretic hormone secretion [Recovered/Resolved]
  - Drug interaction [Unknown]

NARRATIVE: CASE EVENT DATE: 20181107
